FAERS Safety Report 9559478 (Version 1)
Quarter: 2013Q3

REPORT INFORMATION
  Report Type: Report from Study
  Country: CA (occurrence: CA)
  Receive Date: 20130927
  Receipt Date: 20130927
  Transmission Date: 20140515
  Serious: No
  Sender: FDA-Public Use
  Company Number: CA-JNJFOC-20130912237

PATIENT
  Sex: Female

DRUGS (1)
  1. REMICADE [Suspect]
     Indication: CROHN^S DISEASE
     Dosage: WAS ON INFLIXIMAB FOR 12 MONTHS
     Route: 042
     Dates: start: 2006, end: 2007

REACTIONS (4)
  - Respiratory disorder [Unknown]
  - Infusion related reaction [Unknown]
  - Skin reaction [Unknown]
  - Drug ineffective [Unknown]
